FAERS Safety Report 22157084 (Version 2)
Quarter: 2023Q1

REPORT INFORMATION
  Report Type: Report from Study
  Country: US (occurrence: US)
  Receive Date: 20230330
  Receipt Date: 20230331
  Transmission Date: 20230418
  Serious: Yes (Hospitalization, Other)
  Sender: FDA-Public Use
  Company Number: US-ABBVIE-4708920

PATIENT
  Age: 37 Year
  Sex: Female

DRUGS (2)
  1. HUMIRA [Suspect]
     Active Substance: ADALIMUMAB
     Indication: Colitis ulcerative
     Dosage: CITRATE FREE
     Route: 058
     Dates: start: 20230328
  2. HUMIRA [Suspect]
     Active Substance: ADALIMUMAB
     Indication: Psoriatic arthropathy
     Dosage: CITRATE-FREE
     Route: 058
     Dates: start: 20230327, end: 20230327

REACTIONS (7)
  - Loss of consciousness [Unknown]
  - Vomiting [Unknown]
  - Confusional state [Unknown]
  - Nausea [Unknown]
  - Fall [Unknown]
  - Syncope [Unknown]
  - Head injury [Unknown]

NARRATIVE: CASE EVENT DATE: 20230317
